FAERS Safety Report 20962240 (Version 1)
Quarter: 2022Q2

REPORT INFORMATION
  Report Type: Spontaneous
  Country: US (occurrence: None)
  Receive Date: 20220614
  Receipt Date: 20220614
  Transmission Date: 20220721
  Serious: No
  Sender: FDA-Public Use
  Company Number: None

PATIENT
  Age: 77 Year
  Sex: Female
  Weight: 97.65 kg

DRUGS (1)
  1. TRESIBA [Suspect]
     Active Substance: INSULIN DEGLUDEC
     Indication: Blood glucose abnormal
     Dosage: OTHER QUANTITY : 20 INJECTION(S);?FREQUENCY : AT BEDTIME;?
     Route: 030

REACTIONS (2)
  - Incorrect dose administered by device [None]
  - Drug delivery system malfunction [None]

NARRATIVE: CASE EVENT DATE: 20220609
